FAERS Safety Report 6341736-5 (Version None)
Quarter: 2009Q3

REPORT INFORMATION
  Report Type: 
  Country: None (occurrence: None)
  Receive Date: 20090904
  Receipt Date: 20090824
  Transmission Date: 20100115
  Serious: Yes (Other)
  Sender: FDA-Public Use
  Company Number: BR-PFIZER INC-2009251768

PATIENT
  Age: 8 Year

DRUGS (2)
  1. GENOTROPIN [Suspect]
     Indication: GROWTH HORMONE DEFICIENCY
     Dosage: 0.5 MG, 1X/DAY
     Route: 058
     Dates: start: 20090601
  2. GENOTROPIN [Suspect]
     Dosage: 0.6 MG, 1X/DAY

REACTIONS (2)
  - GILBERT'S SYNDROME [None]
  - HEPATIC ENZYME INCREASED [None]
